FAERS Safety Report 9231019 (Version 1)
Quarter: 2013Q1

REPORT INFORMATION
  Report Type: Spontaneous
  Country: US (occurrence: None)
  Receive Date: 20121031
  Receipt Date: 20121031
  Transmission Date: 20140127
  Serious: No
  Sender: FDA-Public Use
  Company Number: PHEH2012US014700

PATIENT
  Age: 46 Year
  Sex: Female

DRUGS (3)
  1. GILENYA (FTY)CAPSULE, 0.5MG [Suspect]
     Indication: MULTIPLE SCLEROSIS
     Route: 048
     Dates: start: 20120618
  2. TYLENOL PM (DIPHENHYDRAMINE, PARACETAMOL) [Concomitant]
  3. GALLATIN [Concomitant]

REACTIONS (1)
  - Sleep disorder [None]
